FAERS Safety Report 17133729 (Version 2)
Quarter: 2020Q1

REPORT INFORMATION
  Report Type: Spontaneous
  Country: US (occurrence: US)
  Receive Date: 20191210
  Receipt Date: 20200228
  Transmission Date: 20200409
  Serious: No
  Sender: FDA-Public Use
  Company Number: US-GLENMARK PHARMACEUTICALS-2019GMK044079

PATIENT

DRUGS (1)
  1. CLOBETASOL PROPIONATE FOAM, 0.05% [Suspect]
     Active Substance: CLOBETASOL PROPIONATE
     Indication: SKIN DISORDER
     Dosage: UNK (SCALP)
     Route: 061

REACTIONS (4)
  - Extra dose administered [Unknown]
  - Skin burning sensation [Recovered/Resolved]
  - Device issue [Unknown]
  - Skin irritation [Unknown]

NARRATIVE: CASE EVENT DATE: 20191025
